FAERS Safety Report 7805048-2 (Version None)
Quarter: 2011Q4

REPORT INFORMATION
  Report Type: 
  Country: None (occurrence: None)
  Receive Date: 20111010
  Receipt Date: 20110930
  Transmission Date: 20120403
  Serious: Yes (Hospitalization)
  Sender: FDA-Public Use
  Company Number: JP-GLAXOSMITHKLINE-B0645331A

PATIENT
  Sex: Female

DRUGS (7)
  1. TYKERB [Suspect]
     Dosage: 1250MG TWICE PER DAY
     Route: 048
     Dates: start: 20101207, end: 20110221
  2. XELODA [Concomitant]
     Indication: PRODUCT USED FOR UNKNOWN INDICATION
     Dosage: 2400MG PER DAY
     Route: 048
     Dates: start: 20100317
  3. PLETAL [Concomitant]
     Indication: THROMBOSIS PROPHYLAXIS
     Route: 048
     Dates: start: 20110115
  4. DEPAKENE [Concomitant]
     Indication: CONVULSION
     Route: 048
     Dates: start: 20090310
  5. XELODA [Concomitant]
     Dosage: 2400MG PER DAY
     Route: 048
     Dates: start: 20101207, end: 20110221
  6. TYKERB [Suspect]
     Indication: BREAST CANCER
     Dosage: 1250MG PER DAY
     Route: 048
     Dates: start: 20100317, end: 20101010
  7. XELODA [Concomitant]
     Dosage: 1200MG PER DAY
     Route: 048
     Dates: end: 20101010

REACTIONS (6)
  - ECZEMA [None]
  - PAIN [None]
  - RASH [None]
  - DIARRHOEA [None]
  - PALMAR-PLANTAR ERYTHRODYSAESTHESIA SYNDROME [None]
  - PARONYCHIA [None]
